FAERS Safety Report 6287098-3 (Version None)
Quarter: 2009Q3

REPORT INFORMATION
  Report Type: 
  Country: None (occurrence: None)
  Receive Date: 20090728
  Receipt Date: 20090721
  Transmission Date: 20100115
  Serious: Yes (Other)
  Sender: FDA-Public Use
  Company Number: CA-PFIZER INC-2009228481

PATIENT
  Age: 78 Year

DRUGS (12)
  1. LYRICA [Suspect]
     Indication: PHANTOM PAIN
     Dosage: 25 MG, 2X/DAY
     Dates: start: 20090201, end: 20090209
  2. LYRICA [Suspect]
     Dosage: 25 MG, 3X/DAY
     Dates: start: 20090210, end: 20090401
  3. LYRICA [Suspect]
     Dosage: 25 MG, UNK
     Dates: start: 20090423
  4. COREG [Concomitant]
     Dosage: 6.25 MG, 2X/DAY
  5. DIGOXIN [Concomitant]
     Dosage: 1.25 MG, 1X/DAY
  6. MONOPRIL [Concomitant]
     Dosage: 0.5 MG, 1X/DAY
  7. SLOW-K [Concomitant]
     Dosage: 600 MG, 1X/DAY
  8. LASIX [Concomitant]
     Dosage: 60 MG, 1X/DAY
  9. ALDACTONE [Concomitant]
     Dosage: 12.5 MG, UNK
  10. ADVAIR HFA [Concomitant]
     Dosage: UNK
  11. SPIRIVA [Concomitant]
     Dosage: UNK
  12. ENDOCET [Concomitant]
     Dosage: UNK

REACTIONS (4)
  - BRADYCARDIA [None]
  - DIABETES MELLITUS [None]
  - FALL [None]
  - RENAL FAILURE [None]
